FAERS Safety Report 6331036-1 (Version None)
Quarter: 2009Q3

REPORT INFORMATION
  Report Type: 
  Country: None (occurrence: None)
  Receive Date: 20090827
  Receipt Date: 20090819
  Transmission Date: 20100115
  Serious: Yes (Death)
  Sender: FDA-Public Use
  Company Number: A0804149A

PATIENT
  Age: 66 Year
  Sex: Male

DRUGS (15)
  1. ALKERAN [Suspect]
  2. THALIDOMIDE [Suspect]
     Indication: MULTIPLE MYELOMA
     Dosage: 100MG PER DAY
     Route: 048
     Dates: start: 20090301
  3. CYTOXAN [Suspect]
     Dates: start: 20080710
  4. VELCADE [Suspect]
     Indication: MULTIPLE MYELOMA
  5. POTASSIUM CHLORIDE [Concomitant]
  6. LASIX [Concomitant]
  7. FLOMAX [Concomitant]
  8. INSULIN [Concomitant]
  9. MAXZIDE [Concomitant]
  10. AVANDIA [Concomitant]
  11. METOPROLOL [Concomitant]
  12. GEMFIBROZIL [Concomitant]
  13. METFORMIN HCL [Concomitant]
  14. TEMAZEPAM [Concomitant]
  15. NEUPOGEN [Concomitant]

REACTIONS (1)
  - MULTIPLE MYELOMA [None]
